FAERS Safety Report 5732777-7 (Version None)
Quarter: 2008Q2

REPORT INFORMATION
  Report Type: 
  Country: None (occurrence: None)
  Receive Date: 20080507
  Receipt Date: 20080507
  Transmission Date: 20081010
  Serious: Yes (Hospitalization)
  Sender: FDA-Public Use
  Company Number: None

PATIENT
  Age: 75 Year
  Sex: Male

DRUGS (2)
  1. TERAZOSIN HCL [Suspect]
     Indication: HYPERTENSION
     Dosage: 10 MG  HS  PO
     Route: 048
     Dates: start: 20080225, end: 20080226
  2. LISINOPRIL [Suspect]
     Dosage: 40 MG EVERYDAY       PO
     Route: 048
     Dates: start: 20080225, end: 20080226

REACTIONS (4)
  - DIZZINESS [None]
  - FALL [None]
  - HYPOTENSION [None]
  - SYNCOPE [None]
